FAERS Safety Report 9850596 (Version 1)
Quarter: 2013Q4

REPORT INFORMATION
  Report Type: Spontaneous
  Country: US (occurrence: None)
  Receive Date: 20131226
  Receipt Date: 20131226
  Transmission Date: 20140711
  Serious: Yes (Other)
  Sender: FDA-Public Use
  Company Number: PHEH2012US010839

PATIENT
  Age: 74 Year
  Sex: Female

DRUGS (2)
  1. AFINITOR (RAD) UNKNOWN [Suspect]
     Indication: RENAL CELL CARCINOMA
     Dates: start: 20091008, end: 20120524
  2. ASPIRIN (ACETYLSALICYLIC ACID) [Concomitant]

REACTIONS (3)
  - Neoplasm [None]
  - Drug ineffective [None]
  - Malignant neoplasm progression [None]
